FAERS Safety Report 7824335-5 (Version None)
Quarter: 2011Q4

REPORT INFORMATION
  Report Type: 
  Country: None (occurrence: None)
  Receive Date: 20111019
  Receipt Date: 20111012
  Transmission Date: 20120403
  Serious: Yes (Hospitalization)
  Sender: FDA-Public Use
  Company Number: US-BRISTOL-MYERS SQUIBB COMPANY-16156374

PATIENT
  Age: 49 Year
  Sex: Male

DRUGS (1)
  1. REYATAZ [Suspect]

REACTIONS (2)
  - MENTAL DISORDER [None]
  - INCORRECT STORAGE OF DRUG [None]
